FAERS Safety Report 8896311 (Version 1)
Quarter: 2012Q4

REPORT INFORMATION
  Report Type: Spontaneous
  Country: US (occurrence: None)
  Receive Date: 20121106
  Receipt Date: 20121106
  Transmission Date: 20130627
  Serious: Yes (Death, Hospitalization)
  Sender: FDA-Public Use
  Company Number: None

PATIENT
  Age: 77 Year
  Sex: Male

DRUGS (9)
  1. REVLIMID [Suspect]
     Indication: MANTLE CELL LYMPHOMA
     Dosage: 25mg, qdx21d/28d, orally
     Route: 048
     Dates: start: 200911, end: 201108
  2. REVLIMID [Concomitant]
  3. PREDNISONE [Concomitant]
  4. NORCO [Concomitant]
  5. ZOLPIDEM [Concomitant]
  6. TAMSULOSIN [Concomitant]
  7. LACTULOSE [Concomitant]
  8. NOVOLIN [Concomitant]
  9. PANTOPRAZOLE [Concomitant]

REACTIONS (9)
  - Mental status changes [None]
  - Insomnia [None]
  - Agitation [None]
  - Pain [None]
  - Hypoxia [None]
  - Atrial fibrillation [None]
  - Atrial flutter [None]
  - Pneumonia aspiration [None]
  - Cardiac arrest [None]
